FAERS Safety Report 7104422-X (Version None)
Quarter: 2010Q4

REPORT INFORMATION
  Report Type: 
  Country: None (occurrence: None)
  Receive Date: 20101116
  Receipt Date: 20090720
  Transmission Date: 20110411
  Serious: Yes (Other)
  Sender: FDA-Public Use
  Company Number: US-ASTRAZENECA-2007UW12140

PATIENT
  Age: 40 Year
  Sex: Female
  Weight: 158.8 kg

DRUGS (42)
  1. SEROQUEL [Suspect]
     Indication: DEPRESSION
     Dosage: 200-1200 MG
     Route: 048
     Dates: start: 20000101
  2. SEROQUEL [Suspect]
     Indication: ANXIETY
     Dosage: 200-1200 MG
     Route: 048
     Dates: start: 20000101
  3. SEROQUEL [Suspect]
     Indication: INSOMNIA
     Dosage: 200-1200 MG
     Route: 048
     Dates: start: 20000101
  4. SEROQUEL [Suspect]
     Indication: BIPOLAR DISORDER
     Dosage: 200-1200 MG
     Route: 048
     Dates: start: 20000101
  5. SEROQUEL [Suspect]
     Dosage: 200-1200 MG
     Route: 048
     Dates: start: 20000101, end: 20070101
  6. SEROQUEL [Suspect]
     Dosage: 200-1200 MG
     Route: 048
     Dates: start: 20000101, end: 20070101
  7. SEROQUEL [Suspect]
     Dosage: 200-1200 MG
     Route: 048
     Dates: start: 20000101, end: 20070101
  8. SEROQUEL [Suspect]
     Dosage: 200-1200 MG
     Route: 048
     Dates: start: 20000101, end: 20070101
  9. SEROQUEL [Suspect]
     Route: 048
     Dates: start: 20000101, end: 20061103
  10. SEROQUEL [Suspect]
     Route: 048
     Dates: start: 20000101, end: 20061103
  11. SEROQUEL [Suspect]
     Route: 048
     Dates: start: 20000101, end: 20061103
  12. SEROQUEL [Suspect]
     Route: 048
     Dates: start: 20000101, end: 20061103
  13. SEROQUEL [Suspect]
     Route: 048
     Dates: start: 20020213
  14. SEROQUEL [Suspect]
     Route: 048
     Dates: start: 20020213
  15. SEROQUEL [Suspect]
     Route: 048
     Dates: start: 20020213
  16. SEROQUEL [Suspect]
     Route: 048
     Dates: start: 20020213
  17. SEROQUEL [Suspect]
     Dosage: 600 -800 MG DAILY
     Route: 048
     Dates: start: 20030218
  18. SEROQUEL [Suspect]
     Dosage: 600 -800 MG DAILY
     Route: 048
     Dates: start: 20030218
  19. SEROQUEL [Suspect]
     Dosage: 600 -800 MG DAILY
     Route: 048
     Dates: start: 20030218
  20. SEROQUEL [Suspect]
     Dosage: 600 -800 MG DAILY
     Route: 048
     Dates: start: 20030218
  21. VALIUM [Concomitant]
     Indication: ANXIETY
     Dosage: 5 -15 MG
     Route: 048
     Dates: start: 20020101
  22. LEXAPRO [Concomitant]
     Indication: BIPOLAR DISORDER
     Dosage: ONE AND HALF TABLET EVERY DAY
     Route: 048
  23. LEXAPRO [Concomitant]
     Indication: DEPRESSION
     Dosage: ONE AND HALF TABLET EVERY DAY
     Route: 048
  24. DEPAKOTE [Concomitant]
     Indication: BIPOLAR DISORDER
     Dosage: 500 MG, 4 TABLETS AT BEDTIME
     Route: 048
  25. DEPAKOTE [Concomitant]
     Indication: DEPRESSION
     Dosage: 500 MG, 4 TABLETS AT BEDTIME
     Route: 048
  26. ALLOPURINOL [Concomitant]
     Route: 048
  27. NADOLOL [Concomitant]
  28. METOPROLOL [Concomitant]
     Dosage: 25 MG, HALF TABLET TWICE DAILY
  29. TOPAMAX [Concomitant]
  30. LORCET-HD [Concomitant]
     Dosage: 7.5 - 1.5 MG DAILY
     Route: 048
     Dates: start: 20020101
  31. CLONAZEPAM [Concomitant]
  32. COLCHICINE [Concomitant]
     Dosage: 1.2 - 1.8 MG DAILY
  33. COZAAR [Concomitant]
  34. FUROSEMIDE [Concomitant]
  35. SINGULAIR [Concomitant]
  36. XANAX [Concomitant]
     Indication: ANXIETY
  37. LUNESTRA [Concomitant]
     Indication: INSOMNIA
  38. HALDOL [Concomitant]
     Dates: start: 19980101
  39. COMBIVENT [Concomitant]
     Dates: start: 20020101
  40. CELEXA [Concomitant]
     Dates: start: 20020101
  41. PREVACID [Concomitant]
     Dates: start: 20020101
  42. CELEBREX [Concomitant]
     Dates: start: 20020101

REACTIONS (14)
  - ANGINA PECTORIS [None]
  - BACK PAIN [None]
  - CHEST PAIN [None]
  - DIABETES MELLITUS [None]
  - GASTROINTESTINAL DISORDER [None]
  - GOUT [None]
  - HYPERTHYROIDISM [None]
  - LEUKAEMIA [None]
  - OBESITY [None]
  - OSTEOARTHRITIS [None]
  - RENAL FAILURE [None]
  - SUICIDE ATTEMPT [None]
  - TYPE 2 DIABETES MELLITUS [None]
  - VERTIGO [None]
